FAERS Safety Report 6182749-6 (Version None)
Quarter: 2009Q2

REPORT INFORMATION
  Report Type: 
  Country: None (occurrence: None)
  Receive Date: 20090507
  Receipt Date: 20090428
  Transmission Date: 20091009
  Serious: Yes (Other)
  Sender: FDA-Public Use
  Company Number: DK-NOVOPROD-283569

PATIENT
  Age: 67 Year
  Sex: Female

DRUGS (2)
  1. VAGIFEM [Suspect]
     Indication: VULVOVAGINAL DRYNESS
     Dosage: 1 TAB, BIW
     Dates: start: 20080903, end: 20081028
  2. VAGIFEM [Suspect]
     Dosage: 2 TABLETS WEEKLY
     Dates: end: 20081028

REACTIONS (1)
  - RETINAL VASCULAR THROMBOSIS [None]
